FAERS Safety Report 10384556 (Version 1)
Quarter: 2014Q3

REPORT INFORMATION
  Report Type: Spontaneous
  Country: US (occurrence: US)
  Receive Date: 20140814
  Receipt Date: 20140814
  Transmission Date: 20150326
  Serious: No
  Sender: FDA-Public Use
  Company Number: US-009507513-1408USA008036

PATIENT
  Age: 4 Year
  Sex: Male

DRUGS (1)
  1. COPPERTONE WATERBABIES LOTION SPF 30 [Suspect]
     Active Substance: OCTINOXATE\OCTOCRYLENE
     Indication: PROPHYLAXIS AGAINST SOLAR RADIATION
     Dosage: UNK, PRN
     Route: 061
     Dates: start: 20140809

REACTIONS (3)
  - Pain [Recovering/Resolving]
  - Crying [Not Recovered/Not Resolved]
  - Accidental exposure to product by child [Unknown]

NARRATIVE: CASE EVENT DATE: 20140809
